FAERS Safety Report 8312691-3 (Version None)
Quarter: 2012Q2

REPORT INFORMATION
  Report Type: 
  Country: None (occurrence: None)
  Receive Date: 20120426
  Receipt Date: 20120417
  Transmission Date: 20120825
  Serious: Yes (Hospitalization)
  Sender: FDA-Public Use
  Company Number: US-BIOGENIDEC-2012BI010897

PATIENT
  Age: 47 Year
  Sex: Male

DRUGS (1)
  1. TYSABRI [Suspect]
     Indication: PRODUCT USED FOR UNKNOWN INDICATION
     Route: 042
     Dates: start: 20110309, end: 20120101

REACTIONS (4)
  - DERMATITIS ALLERGIC [None]
  - DRUG SPECIFIC ANTIBODY PRESENT [None]
  - CONVULSION [None]
  - BLOOD PRESSURE INCREASED [None]
